FAERS Safety Report 7291411-8 (Version None)
Quarter: 2011Q1

REPORT INFORMATION
  Report Type: 
  Country: None (occurrence: None)
  Receive Date: 20110214
  Receipt Date: 20110204
  Transmission Date: 20110831
  Serious: Yes (Disabling)
  Sender: FDA-Public Use
  Company Number: B0699225A

PATIENT
  Sex: Male

DRUGS (2)
  1. VENTOLIN [Concomitant]
     Indication: ASTHMA
     Route: 055
     Dates: start: 20051013, end: 20080519
  2. FLUTIDE [Suspect]
     Indication: ASTHMA
     Route: 055
     Dates: start: 20060103, end: 20080519

REACTIONS (2)
  - OBESITY [None]
  - WEIGHT INCREASED [None]
